FAERS Safety Report 11441944 (Version 1)
Quarter: 2015Q3

REPORT INFORMATION
  Report Type: Spontaneous
  Country: US (occurrence: US)
  Receive Date: 20150901
  Receipt Date: 20150901
  Transmission Date: 20151125
  Serious: No
  Sender: FDA-Public Use
  Company Number: US-ASTRAZENECA-2015SE83521

PATIENT
  Age: 48 Year
  Sex: Female

DRUGS (20)
  1. CARBOPLATIN. [Concomitant]
     Active Substance: CARBOPLATIN
  2. TAXANES [Concomitant]
     Active Substance: UNSPECIFIED INGREDIENT
  3. TAMOXIFEN [Concomitant]
     Active Substance: TAMOXIFEN
  4. ANTHRACYCLINES [Concomitant]
     Active Substance: UNSPECIFIED INGREDIENT
  5. VITAMIN D [Concomitant]
     Active Substance: CHOLECALCIFEROL
  6. CITALOPRAM [Concomitant]
     Active Substance: CITALOPRAM HYDROBROMIDE
  7. BISPHOSPHONATES [Concomitant]
     Active Substance: UNSPECIFIED INGREDIENT
  8. GEMCITABINE [Concomitant]
     Active Substance: GEMCITABINE\GEMCITABINE HYDROCHLORIDE
  9. LETROZOLE. [Concomitant]
     Active Substance: LETROZOLE
  10. TRIPTORELIN [Concomitant]
     Active Substance: TRIPTORELIN
     Dates: start: 20150209
  11. EPIRUBICIN [Concomitant]
     Active Substance: EPIRUBICIN
  12. FLUVESTRANT [Suspect]
     Active Substance: FULVESTRANT
     Route: 030
     Dates: end: 201108
  13. MAGNESIUM SUPPLEMENT [Concomitant]
  14. ALPRAZOLAM. [Concomitant]
     Active Substance: ALPRAZOLAM
  15. DENOSUMAB [Concomitant]
     Active Substance: DENOSUMAB
     Dates: start: 20140123
  16. NAB-PACLITAXEL [Concomitant]
     Active Substance: PACLITAXEL
  17. CAPECITABINE. [Concomitant]
     Active Substance: CAPECITABINE
  18. OMEPRAZOLE. [Concomitant]
     Active Substance: OMEPRAZOLE
  19. L-THYROX [Concomitant]
     Active Substance: LEVOTHYROXINE SODIUM
  20. ZOLEDRONIC ACID [Concomitant]
     Active Substance: ZOLEDRONIC ACID

REACTIONS (10)
  - Lymphadenopathy [Unknown]
  - Hepatic lesion [Unknown]
  - Haemoptysis [Unknown]
  - Back pain [Unknown]
  - Pneumonitis [Unknown]
  - Cough [Unknown]
  - Disease progression [Unknown]
  - Weight decreased [Unknown]
  - Asthenia [Unknown]
  - Decreased appetite [Unknown]
